FAERS Safety Report 6100758-X (Version None)
Quarter: 2009Q1

REPORT INFORMATION
  Report Type: 
  Country: None (occurrence: None)
  Receive Date: 20090303
  Receipt Date: 20090302
  Transmission Date: 20090719
  Serious: Yes (Death, Other)
  Sender: FDA-Public Use
  Company Number: US-B.I. PHARMACEUTICALS,INC./RIDGEFIELD-2009-BP-01613BP

PATIENT

DRUGS (7)
  1. VIRAMUNE [Suspect]
     Indication: HIV INFECTION
     Dosage: 400MG
  2. VIRAMUNE [Suspect]
     Dosage: 200MG
  3. DIDANOSINE [Suspect]
     Indication: HIV INFECTION
  4. DIDANOSINE [Suspect]
     Dosage: 200MG
  5. LAMIVUDINE [Suspect]
     Indication: HIV INFECTION
     Dosage: 300MG
  6. LAMIVUDINE [Suspect]
     Dosage: 200MG
  7. ANTITUBERCULAR AGENTS [Concomitant]
     Indication: TUBERCULOSIS

REACTIONS (4)
  - ADVERSE EVENT [None]
  - DEATH [None]
  - DRUG RESISTANCE [None]
  - STEVENS-JOHNSON SYNDROME [None]
